FAERS Safety Report 8595386-0 (Version None)
Quarter: 2012Q3

REPORT INFORMATION
  Report Type: 
  Country: None (occurrence: None)
  Receive Date: 20120815
  Receipt Date: 20120629
  Transmission Date: 20120928
  Serious: No
  Sender: FDA-Public Use
  Company Number: US-BRISTOL-MYERS SQUIBB COMPANY-16562142

PATIENT
  Age: 63 Year
  Sex: Female

DRUGS (6)
  1. LEXAPRO [Concomitant]
  2. BUPROPION HCL [Concomitant]
     Dosage: BUPROPION XL
  3. PREVACID [Concomitant]
  4. GLUMETZA [Concomitant]
  5. ONGLYZA [Suspect]
     Dates: start: 20111205
  6. GLIPIZIDE [Concomitant]
     Dosage: GLIPIZIDE XL

REACTIONS (1)
  - MEDICATION RESIDUE [None]
